FAERS Safety Report 5156039-4 (Version None)
Quarter: 2006Q4

REPORT INFORMATION
  Report Type: 
  Country: None (occurrence: None)
  Receive Date: 20061114
  Receipt Date: 20061107
  Transmission Date: 20070319
  Serious: Yes (Other)
  Sender: FDA-Public Use
  Company Number: S06-USA-02842-01

PATIENT
  Age: 41 Year
  Sex: Female

DRUGS (9)
  1. CELEXA [Suspect]
     Indication: MAJOR DEPRESSION
     Dosage: 40 MG QD PO
     Route: 048
     Dates: start: 20060707, end: 20060723
  2. CELEXA [Suspect]
     Indication: MUSCULOSKELETAL PAIN
     Dosage: 40 MG QD PO
     Route: 048
     Dates: start: 20060707, end: 20060723
  3. CELEXA [Suspect]
     Indication: MAJOR DEPRESSION
     Dosage: 30 MG QD PO
     Route: 048
     Dates: start: 20060327, end: 20060706
  4. CELEXA [Suspect]
     Indication: MUSCULOSKELETAL PAIN
     Dosage: 30 MG QD PO
     Route: 048
     Dates: start: 20060327, end: 20060706
  5. CELEXA [Suspect]
     Indication: MAJOR DEPRESSION
     Dosage: 30 MG QD PO
     Route: 048
     Dates: start: 20060724, end: 20060926
  6. CELEXA [Suspect]
     Indication: MUSCULOSKELETAL PAIN
     Dosage: 30 MG QD PO
     Route: 048
     Dates: start: 20060724, end: 20060926
  7. CELEXA [Suspect]
     Indication: MAJOR DEPRESSION
     Dosage: 40 MG QD PO
     Route: 048
     Dates: start: 20060927
  8. CELEXA [Suspect]
     Indication: MUSCULOSKELETAL PAIN
     Dosage: 40 MG QD PO
     Route: 048
     Dates: start: 20060927
  9. ULTRAM [Suspect]
     Indication: MUSCULOSKELETAL PAIN

REACTIONS (2)
  - CONVULSION [None]
  - LOSS OF CONSCIOUSNESS [None]
